FAERS Safety Report 8465675-9 (Version None)
Quarter: 2012Q2

REPORT INFORMATION
  Report Type: 
  Country: None (occurrence: None)
  Receive Date: 20120620
  Receipt Date: 20120620
  Transmission Date: 20120825
  Serious: Yes (Other)
  Sender: FDA-Public Use
  Company Number: None

PATIENT
  Sex: Female

DRUGS (1)
  1. DR. SCHOLL'S WART REMOVER GEL [Suspect]
     Indication: SKIN PAPILLOMA
     Dosage: 12/02/2008 OR 12/03/2008

REACTIONS (5)
  - BURNS THIRD DEGREE [None]
  - BURNING SENSATION [None]
  - PAIN [None]
  - APPLICATION SITE BURN [None]
  - SCAR [None]
